FAERS Safety Report 9196300 (Version 1)
Quarter: 2013Q1

REPORT INFORMATION
  Report Type: Spontaneous
  Country: US (occurrence: None)
  Receive Date: 20120709
  Receipt Date: 20120709
  Transmission Date: 20140127
  Serious: No
  Sender: FDA-Public Use
  Company Number: 2012HGS-003493

PATIENT
  Sex: Female
  Weight: 132 kg

DRUGS (13)
  1. BENLYSTA [Suspect]
     Indication: SYSTEMIC LUPUS ERYTHEMATOSUS
     Dosage: 1 IN 28 D, INTRAVENOUS DRIP
     Route: 041
     Dates: start: 20120406
  2. FOSAMAX [Concomitant]
  3. PREDNISONE (PREDNISONE) (PREDNISONE) [Concomitant]
  4. PLAQUENIL (HYDROXYCHLOROQUINE PHOSPHATE) (HYDROCHLOROQUINE PHOSPHATE) [Concomitant]
  5. LOTREL (AMLODIPINE BESYLATE W/BENAZEPRIL HYDROCHLORIDE) (BENZEPRIL HYDROCHLORIDE , AMLODIPINE BESILATE) [Concomitant]
  6. MINOXIDIL (MINOXIDIL) (MINOXIDIL) [Concomitant]
  7. CELLCEPT (MYCOPHENOLATE MOFETIL) (MYCOPHENOLATE MOFETIL) [Concomitant]
  8. PREVACID (LANSOPRAZOLE) (LANSOPRAZOLE) [Concomitant]
  9. CALCIUM CARB (CALCIUM CARBONATE) (CALCIUM CARBONATE) [Concomitant]
  10. CLONIDINE (CLONIDINE) (CLONIDINE) [Concomitant]
  11. POTASSIUM (POTASSIUM) (POTASSIUM) [Concomitant]
  12. AMBIEN (ZOLPIDEM TARTRATE) ZOLPIDEM TARTRATE) [Concomitant]
  13. ROPINIROLE (ROPINIROLE) (ROPINIROLE) [Concomitant]

REACTIONS (1)
  - Insomnia [None]
